FAERS Safety Report 8180771-1 (Version None)
Quarter: 2012Q1

REPORT INFORMATION
  Report Type: 
  Country: None (occurrence: None)
  Receive Date: 20120302
  Receipt Date: 20120228
  Transmission Date: 20120608
  Serious: Yes (Hospitalization, Other)
  Sender: FDA-Public Use
  Company Number: US-PFIZER INC-2012052022

PATIENT
  Sex: Male
  Weight: 112.93 kg

DRUGS (11)
  1. TIKOSYN [Suspect]
     Indication: ATRIAL FIBRILLATION
     Dosage: 0.5 MG, 2X/DAY
     Route: 048
     Dates: start: 20090101
  2. TAMSULOSIN HYDROCHLORIDE [Concomitant]
     Dosage: 0.4 MG, DAILY
  3. LASIX [Concomitant]
     Dosage: 80 MG, DAILY
  4. MAGNESIUM [Concomitant]
     Dosage: 400 MG, DAILY
  5. WARFARIN [Concomitant]
     Dosage: AS NEEDED
     Route: 048
  6. ACETYLSALICYLIC ACID [Concomitant]
     Dosage: 81 MG, DAILY
  7. POTASSIUM [Concomitant]
     Dosage: 200 MEQ, DAILY
  8. NEXIUM [Concomitant]
     Dosage: 40 MG, DAILY
  9. AMBIEN [Concomitant]
     Dosage: 10 MG, DAILY
  10. LIPITOR [Concomitant]
     Dosage: 40 MG, DAILY
  11. CARDIZEM [Concomitant]
     Dosage: 180 MG, 2X/DAY

REACTIONS (3)
  - PNEUMONIA [None]
  - RESPIRATORY FAILURE [None]
  - BRONCHITIS [None]
